FAERS Safety Report 8936903 (Version 3)
Quarter: 2013Q1

REPORT INFORMATION
  Report Type: Spontaneous
  Country: US (occurrence: US)
  Receive Date: 20121130
  Receipt Date: 20130325
  Transmission Date: 20140127
  Serious: No
  Sender: FDA-Public Use
  Company Number: US-009507513-1211USA012253

PATIENT
  Age: 73 Year
  Sex: Female
  Weight: 48.98 kg

DRUGS (13)
  1. CLARITIN REDITABS [Suspect]
     Indication: HYPERSENSITIVITY
     Dosage: 10 MG, QD
     Route: 048
     Dates: start: 20121006, end: 20121010
  2. CLARITIN REDITABS [Suspect]
     Indication: SNEEZING
  3. CLARITIN REDITABS [Suspect]
     Indication: RHINORRHOEA
  4. CLARITIN REDITABS [Suspect]
     Indication: LACRIMATION INCREASED
  5. CLARITIN REDITABS [Suspect]
     Indication: EYE PRURITUS
  6. CLARITIN REDITABS [Suspect]
     Indication: MEDICAL OBSERVATION
  7. LIPITOR [Concomitant]
     Indication: BLOOD CHOLESTEROL INCREASED
     Dosage: UNK, UNKNOWN
  8. PRINIVIL [Concomitant]
     Indication: HYPERTENSION
     Dosage: UNK, UNKNOWN
  9. SYNTHROID [Concomitant]
     Indication: THYROID DISORDER
     Dosage: UNK, UNKNOWN
  10. ASPIRIN [Concomitant]
     Indication: PRODUCT USED FOR UNKNOWN INDICATION
     Dosage: UNK, UNKNOWN
  11. VITAMIN D (UNSPECIFIED) [Concomitant]
     Indication: PRODUCT USED FOR UNKNOWN INDICATION
     Dosage: UNK, UNKNOWN
  12. PYRIDOXINE [Concomitant]
     Indication: PRODUCT USED FOR UNKNOWN INDICATION
     Dosage: UNK, UNKNOWN
  13. CYANOCOBALAMIN [Concomitant]
     Indication: PRODUCT USED FOR UNKNOWN INDICATION
     Dosage: UNK, UNKNOWN

REACTIONS (1)
  - Drug ineffective [Unknown]
